FAERS Safety Report 11163601 (Version 1)
Quarter: 2015Q2

REPORT INFORMATION
  Report Type: Report from Study
  Country: BR (occurrence: BR)
  Receive Date: 20150604
  Receipt Date: 20150604
  Transmission Date: 20150821
  Serious: Yes (Other)
  Sender: FDA-Public Use
  Company Number: PHHY2015BR064476

PATIENT
  Sex: Female
  Weight: 71 kg

DRUGS (4)
  1. METFORMIN [Suspect]
     Active Substance: METFORMIN HYDROCHLORIDE
     Indication: DIABETES MELLITUS
     Dosage: 3 DF, QD (1 AFTER BREAKFAST AND LUNCH)
     Route: 065
  2. INSULIN [Concomitant]
     Active Substance: INSULIN NOS
     Indication: DIABETES MELLITUS
     Route: 065
  3. GALVUS [Suspect]
     Active Substance: VILDAGLIPTIN
     Indication: DIABETES MELLITUS
     Dosage: 1 DF, QD (START: 7 TO 8 YEARS)
     Route: 065
  4. GALVUS [Suspect]
     Active Substance: VILDAGLIPTIN
     Dosage: 2 DF, BID (LUNCH/DINNER)
     Route: 065

REACTIONS (2)
  - Skin cancer [Recovering/Resolving]
  - Drug ineffective [Unknown]
